FAERS Safety Report 6197431-9 (Version None)
Quarter: 2009Q2

REPORT INFORMATION
  Report Type: 
  Country: None (occurrence: None)
  Receive Date: 20090518
  Receipt Date: 20090512
  Transmission Date: 20091009
  Serious: Yes (Death)
  Sender: FDA-Public Use
  Company Number: SPV1-2009-00949

PATIENT
  Sex: Male
  Weight: 77.1 kg

DRUGS (1)
  1. ADDERALL 10 [Suspect]
     Indication: ATTENTION DEFICIT/HYPERACTIVITY DISORDER
     Dosage: 20 MG, 1X/DAY QD, ORAL
     Route: 048
     Dates: start: 20020101, end: 20090401

REACTIONS (2)
  - MYOCARDITIS [None]
  - SUDDEN DEATH [None]
